FAERS Safety Report 21985006 (Version 3)
Quarter: 2023Q1

REPORT INFORMATION
  Report Type: Report from Study
  Country: MX (occurrence: MX)
  Receive Date: 20230213
  Receipt Date: 20230324
  Transmission Date: 20230417
  Serious: Yes (Hospitalization)
  Sender: FDA-Public Use
  Company Number: MX-002147023-NVSC2023MX002242

PATIENT

DRUGS (1)
  1. RUXOLITINIB [Suspect]
     Active Substance: RUXOLITINIB
     Indication: Primary myelofibrosis
     Dosage: UNK
     Route: 048

REACTIONS (7)
  - Gastric disorder [Unknown]
  - Ill-defined disorder [Recovering/Resolving]
  - Haemorrhage [Unknown]
  - General physical health deterioration [Unknown]
  - Condition aggravated [Unknown]
  - Hyperchlorhydria [Recovering/Resolving]
  - Gastric varices [Unknown]
